FAERS Safety Report 5207056-7 (Version None)
Quarter: 2007Q1

REPORT INFORMATION
  Report Type: 
  Country: None (occurrence: None)
  Receive Date: 20070112
  Receipt Date: 20070102
  Transmission Date: 20070707
  Serious: Yes (Hospitalization)
  Sender: FDA-Public Use
  Company Number: CA-AMGEN-US205353

PATIENT
  Sex: Male

DRUGS (3)
  1. ENBREL [Suspect]
     Indication: PSORIATIC ARTHROPATHY
     Route: 058
     Dates: start: 20031231, end: 20060702
  2. FOSAMAX [Concomitant]
  3. NEXIUM [Concomitant]

REACTIONS (2)
  - LUPUS-LIKE SYNDROME [None]
  - PULMONARY ALVEOLAR HAEMORRHAGE [None]
